FAERS Safety Report 5973418-3 (Version None)
Quarter: 2008Q4

REPORT INFORMATION
  Report Type: 
  Country: None (occurrence: None)
  Receive Date: 20081201
  Receipt Date: 20081121
  Transmission Date: 20090506
  Serious: Yes (Hospitalization)
  Sender: FDA-Public Use
  Company Number: DE-BAYER-200831376GPV

PATIENT
  Age: 69 Year
  Sex: Female

DRUGS (8)
  1. ALEMTUZUMAB [Suspect]
     Indication: T-CELL LYMPHOMA
     Route: 058
     Dates: start: 20081028, end: 20081112
  2. PREDNISONE TAB [Suspect]
     Indication: T-CELL LYMPHOMA
     Route: 048
     Dates: start: 20081028, end: 20081115
  3. CYCLOPHOSPHAMIDE [Suspect]
     Indication: T-CELL LYMPHOMA
     Route: 042
     Dates: start: 20081028, end: 20081111
  4. DOXORUBICIN HCL [Suspect]
     Indication: T-CELL LYMPHOMA
     Route: 042
     Dates: start: 20081028, end: 20081111
  5. VINCRISTINE [Suspect]
     Indication: T-CELL LYMPHOMA
     Route: 042
     Dates: start: 20081028, end: 20081111
  6. NEUPOGEN [Suspect]
     Indication: T-CELL LYMPHOMA
     Route: 058
     Dates: start: 20081031, end: 20081118
  7. AMITRIPTYLINE HCL [Concomitant]
     Indication: ANXIETY
     Route: 048
     Dates: start: 20080901
  8. HYDROCHLOROTHIAZIDE [Concomitant]
     Indication: HYPERTENSION
     Route: 048
     Dates: start: 19930101

REACTIONS (2)
  - CHILLS [None]
  - CIRCULATORY COLLAPSE [None]
